FAERS Safety Report 17882664 (Version 1)
Quarter: 2020Q2

REPORT INFORMATION
  Report Type: Spontaneous
  Country: DE (occurrence: DE)
  Receive Date: 20200610
  Receipt Date: 20200610
  Transmission Date: 20200714
  Serious: Yes (Hospitalization, Other)
  Sender: FDA-Public Use
  Company Number: DE-AMGEN-DEUSP2020089722

PATIENT
  Age: 52 Year
  Sex: Female
  Weight: 50 kg

DRUGS (6)
  1. EPIRUBICIN [Concomitant]
     Active Substance: EPIRUBICIN
     Indication: BREAST CANCER FEMALE
     Dosage: 140 MILLIGRAM (4TH CYCLE)
     Dates: start: 20200423
  2. DEXAMETHASONE. [Concomitant]
     Active Substance: DEXAMETHASONE
     Dosage: 12 MILLIGRAM
     Route: 042
     Dates: start: 20200423
  3. NEULASTA [Suspect]
     Active Substance: PEGFILGRASTIM
     Indication: BREAST CANCER FEMALE
     Dosage: 6 MILLIGRAM (4TH ADMINISTRATION)
     Route: 065
     Dates: start: 20200424
  4. EMEND [Concomitant]
     Active Substance: APREPITANT
     Indication: CHEMOTHERAPY SIDE EFFECT PROPHYLAXIS
     Dosage: 125 AND 80 MILLIGRAM
     Dates: start: 20200423, end: 20200425
  5. CYCLOPHOSPHAMID [Concomitant]
     Active Substance: CYCLOPHOSPHAMIDE
     Indication: BREAST CANCER FEMALE
     Dosage: 950 MILLIGRAM (4TH CYCLE)
     Dates: start: 20200423
  6. GRANISETRON [Concomitant]
     Active Substance: GRANISETRON
     Dosage: 1 MILLIGRAM
     Route: 042
     Dates: start: 20200423

REACTIONS (8)
  - Cardiac discomfort [Unknown]
  - Angina pectoris [Unknown]
  - Gait disturbance [Unknown]
  - Asthenia [Unknown]
  - Heart rate increased [Unknown]
  - Thirst [Unknown]
  - Dehydration [Unknown]
  - Blood pressure fluctuation [Unknown]

NARRATIVE: CASE EVENT DATE: 20200425
